FAERS Safety Report 8160878-5 (Version None)
Quarter: 2012Q1

REPORT INFORMATION
  Report Type: 
  Country: None (occurrence: None)
  Receive Date: 20120223
  Receipt Date: 20120214
  Transmission Date: 20120608
  Serious: Yes (Other)
  Sender: FDA-Public Use
  Company Number: BR-ASTRAZENECA-2012SE09959

PATIENT
  Age: 62 Year
  Sex: Female
  Weight: 94 kg

DRUGS (2)
  1. ATACAND HCT [Suspect]
     Indication: HYPERTENSION
     Dosage: 8+12.5 MG DAILY
     Route: 048
     Dates: end: 20110701
  2. SIMVASTATIN [Concomitant]
     Route: 048
     Dates: end: 20120101

REACTIONS (4)
  - WEIGHT LOSS POOR [None]
  - ARTHRITIS [None]
  - BLOOD PRESSURE INCREASED [None]
  - DRUG INEFFECTIVE [None]
